FAERS Safety Report 7360299-9 (Version None)
Quarter: 2011Q1

REPORT INFORMATION
  Report Type: 
  Country: None (occurrence: None)
  Receive Date: 20110318
  Receipt Date: 20110309
  Transmission Date: 20110831
  Serious: No
  Sender: FDA-Public Use
  Company Number: US-JNJFOC-20110304800

PATIENT
  Sex: Female

DRUGS (8)
  1. OXYCODONE HCL [Concomitant]
     Indication: PAIN
     Dosage: 2 TABLETS OF 5 MG 4 TIMES IN A DAY
     Route: 048
  2. PHENERGAN [Concomitant]
     Indication: NAUSEA
     Route: 048
  3. COLACE [Concomitant]
     Indication: ABNORMAL FAECES
     Route: 048
  4. HORMONE PATCH NOS [Concomitant]
     Indication: HORMONE REPLACEMENT THERAPY
     Route: 062
  5. ELMIRON [Concomitant]
     Indication: CYSTITIS INTERSTITIAL
     Route: 048
  6. DURAGESIC-50 [Suspect]
     Indication: PAIN
     Route: 062
  7. MUSCLE RELAXANT [Concomitant]
     Indication: MYALGIA
     Route: 048
  8. LIDODERM [Concomitant]
     Indication: PAIN
     Route: 062

REACTIONS (2)
  - WITHDRAWAL SYNDROME [None]
  - INAPPROPRIATE SCHEDULE OF DRUG ADMINISTRATION [None]
